FAERS Safety Report 11434454 (Version 1)
Quarter: 2015Q3

REPORT INFORMATION
  Report Type: Spontaneous
  Country: US (occurrence: None)
  Receive Date: 20150828
  Receipt Date: 20150828
  Transmission Date: 20151125
  Serious: No
  Sender: FDA-Public Use
  Company Number: None

PATIENT
  Age: 15 Year
  Sex: Female
  Weight: 79.38 kg

DRUGS (1)
  1. DEXMETHYLPHENIDATE [Suspect]
     Active Substance: DEXMETHYLPHENIDATE HYDROCHLORIDE
     Indication: ATTENTION DEFICIT/HYPERACTIVITY DISORDER
     Dosage: 1 - 25MG CAPSULE DAILY - QAM ORALLY
     Route: 048
     Dates: start: 201401

REACTIONS (4)
  - Syncope [None]
  - Product substitution issue [None]
  - Nausea [None]
  - Blood glucose decreased [None]

NARRATIVE: CASE EVENT DATE: 201401
